FAERS Safety Report 24131917 (Version 4)
Quarter: 2024Q4

REPORT INFORMATION
  Report Type: Spontaneous
  Country: US (occurrence: US)
  Receive Date: 20240724
  Receipt Date: 20241202
  Transmission Date: 20250115
  Serious: No
  Sender: PFIZER
  Company Number: US-PFIZER INC-202400219724

PATIENT
  Age: 8 Year
  Sex: Male

DRUGS (3)
  1. GENOTROPIN [Suspect]
     Active Substance: SOMATROPIN
     Dosage: 6 DAYS PER WEEK
  2. GENOTROPIN [Suspect]
     Active Substance: SOMATROPIN
     Dosage: 1MG ALTERNATING WITH 1.2MG
  3. GENOTROPIN [Suspect]
     Active Substance: SOMATROPIN
     Dosage: 1MG ALTERNATING WITH 1.2MG

REACTIONS (5)
  - Product prescribing error [Unknown]
  - Device defective [Unknown]
  - Device leakage [Unknown]
  - Drug dose omission by device [Unknown]
  - Device use error [Unknown]
